FAERS Safety Report 7559665-8 (Version None)
Quarter: 2011Q2

REPORT INFORMATION
  Report Type: 
  Country: None (occurrence: None)
  Receive Date: 20110621
  Receipt Date: 20110608
  Transmission Date: 20111010
  Serious: Yes (Hospitalization)
  Sender: FDA-Public Use
  Company Number: US-CELGENEUS-163-21880-11061317

PATIENT
  Sex: Male

DRUGS (8)
  1. REVLIMID [Suspect]
     Indication: MULTIPLE MYELOMA
     Dosage: 25 MILLIGRAM
     Route: 048
     Dates: start: 20100901
  2. REVLIMID [Suspect]
     Dosage: 10 MILLIGRAM
     Route: 048
     Dates: start: 20110501
  3. VELCADE [Concomitant]
     Dosage: 3.5 MILLIGRAM
     Route: 051
  4. DILTIAZEM CD [Concomitant]
     Dosage: 120 MILLIGRAM
     Route: 065
  5. REVLIMID [Suspect]
     Dosage: 10 MILLIGRAM
     Route: 048
     Dates: start: 20101201
  6. REVLIMID [Suspect]
     Dosage: 25MG-15MG
     Route: 048
     Dates: start: 20101201
  7. DEXAMETHASONE [Concomitant]
     Dosage: 4 MILLIGRAM
     Route: 065
  8. MULTIVITAMINS AND IRON [Concomitant]
     Route: 065

REACTIONS (1)
  - INTESTINAL OBSTRUCTION [None]
